FAERS Safety Report 4868632-4 (Version None)
Quarter: 2005Q4

REPORT INFORMATION
  Report Type: 
  Country: None (occurrence: None)
  Receive Date: 20051223
  Receipt Date: 20051215
  Transmission Date: 20060501
  Serious: Yes (Disabling, Other)
  Sender: FDA-Public Use
  Company Number: 2005089907

PATIENT
  Age: 57 Year
  Sex: Male
  Weight: 74.8435 kg

DRUGS (1)
  1. LIPITOR [Suspect]
     Indication: BLOOD CHOLESTEROL INCREASED
     Dosage: 80 MG (80MG, 1 IN 1 D), ORAL
     Route: 048

REACTIONS (4)
  - ACCIDENT AT WORK [None]
  - CARDIAC FAILURE CONGESTIVE [None]
  - MYALGIA [None]
  - MYOCARDIAL INFARCTION [None]
